FAERS Safety Report 8521189-9 (Version None)
Quarter: 2012Q3

REPORT INFORMATION
  Report Type: 
  Country: None (occurrence: None)
  Receive Date: 20120712
  Receipt Date: 20120712
  Transmission Date: 20120928
  Serious: Yes (Life-Threatening, Hospitalization)
  Sender: FDA-Public Use
  Company Number: None

PATIENT
  Age: 84 Year
  Sex: Female
  Weight: 70 kg

DRUGS (1)
  1. DABIGATRAN 150 MG BOEHRINGER INGELHEIM [Suspect]
     Indication: ARRHYTHMIA
     Dosage: 150 MG BID PO
     Route: 048
     Dates: start: 20110118, end: 20120709

REACTIONS (1)
  - LOWER GASTROINTESTINAL HAEMORRHAGE [None]
